FAERS Safety Report 17431108 (Version 1)
Quarter: 2020Q1

REPORT INFORMATION
  Report Type: Spontaneous
  Country: US (occurrence: US)
  Receive Date: 20200217
  Receipt Date: 20200217
  Transmission Date: 20200409
  Serious: No
  Sender: FDA-Public Use
  Company Number: None

PATIENT
  Age: 80 Year
  Sex: Male
  Weight: 49.05 kg

DRUGS (7)
  1. LUPRON [Concomitant]
     Active Substance: LEUPROLIDE ACETATE
  2. CENTRUM SILVER [Concomitant]
     Active Substance: MINERALS\VITAMINS
  3. ABIRERATERONE [Suspect]
     Active Substance: ABIRATERONE
  4. DILTIAZEM. [Concomitant]
     Active Substance: DILTIAZEM
  5. VALSARTAN. [Concomitant]
     Active Substance: VALSARTAN
  6. ACCUVITE [Concomitant]
  7. STOOL SOFTERNER [Concomitant]

REACTIONS (1)
  - Disease progression [None]

NARRATIVE: CASE EVENT DATE: 20200217
